FAERS Safety Report 6647391-9 (Version None)
Quarter: 2010Q1

REPORT INFORMATION
  Report Type: 
  Country: None (occurrence: None)
  Receive Date: 20100323
  Receipt Date: 20100317
  Transmission Date: 20100710
  Serious: Yes (Hospitalization)
  Sender: FDA-Public Use
  Company Number: US-BAYER-201017027NA

PATIENT

DRUGS (1)
  1. MAGNEVIST [Suspect]
     Indication: DRUG USE FOR UNKNOWN INDICATION
     Dosage: TOTAL DAILY DOSE: 30  ML  UNIT DOSE: 15 ML
     Dates: start: 20100222, end: 20100222

REACTIONS (2)
  - CARDIO-RESPIRATORY ARREST [None]
  - UNEVALUABLE EVENT [None]
